FAERS Safety Report 4815708-3 (Version None)
Quarter: 2005Q4

REPORT INFORMATION
  Report Type: 
  Country: None (occurrence: None)
  Receive Date: 20051027
  Receipt Date: 20051014
  Transmission Date: 20060501
  Serious: Yes (Life-Threatening, Hospitalization)
  Sender: FDA-Public Use
  Company Number: MK200507-0212-2

PATIENT
  Age: 58 Year
  Sex: Female

DRUGS (1)
  1. OPTIRAY 320 [Suspect]
     Indication: COMPUTERISED TOMOGRAM
     Dosage: 100 ML, ONCE, IV
     Route: 042
     Dates: start: 20050721, end: 20050721

REACTIONS (6)
  - BLOOD PRESSURE SYSTOLIC INCREASED [None]
  - EYELID OEDEMA [None]
  - MYOCARDIAL INFARCTION [None]
  - NASAL CONGESTION [None]
  - PROCEDURAL COMPLICATION [None]
  - SHOCK [None]
